FAERS Safety Report 21714527 (Version 1)
Quarter: 2022Q4

REPORT INFORMATION
  Report Type: Spontaneous
  Country: US (occurrence: None)
  Receive Date: 20221209
  Receipt Date: 20221209
  Transmission Date: 20230113
  Serious: No
  Sender: FDA-Public Use
  Company Number: None

PATIENT
  Age: 55 Year
  Sex: Female

DRUGS (4)
  1. RASUVO [Suspect]
     Active Substance: METHOTREXATE SODIUM
     Indication: Psoriatic arthropathy
     Dosage: FREQUENCY : WEEKLY;?
     Route: 058
     Dates: start: 202207
  2. RASUVO [Suspect]
     Active Substance: METHOTREXATE SODIUM
     Indication: Psoriasis
  3. TREMFYA [Suspect]
     Active Substance: GUSELKUMAB
     Indication: Psoriatic arthropathy
     Dosage: FREQUENCY : AS DIRECTED;?
     Route: 058
     Dates: start: 202201
  4. TREMFYA [Suspect]
     Active Substance: GUSELKUMAB
     Indication: Psoriasis

REACTIONS (1)
  - Hospitalisation [None]
